FAERS Safety Report 4313260-2 (Version None)
Quarter: 2004Q1

REPORT INFORMATION
  Report Type: 
  Country: None (occurrence: None)
  Receive Date: 20040305
  Receipt Date: 20040213
  Transmission Date: 20041129
  Serious: Yes (Death, Other)
  Sender: FDA-Public Use
  Company Number: A-CH2004-04218

PATIENT
  Age: 55 Year
  Sex: Male

DRUGS (4)
  1. TRACLEER [Suspect]
     Indication: PULMONARY HYPERTENSION
     Dosage: 62.5 MG, BID ,ORAL  : 31.25 MG, OD, ORAL
     Route: 048
     Dates: start: 20040106, end: 20040101
  2. TRACLEER [Suspect]
     Indication: PULMONARY HYPERTENSION
     Dosage: 62.5 MG, BID ,ORAL  : 31.25 MG, OD, ORAL
     Route: 048
     Dates: start: 20040101, end: 20040113
  3. DIURETICS [Concomitant]
  4. FOZITEC (FOSINOPRIL) [Concomitant]

REACTIONS (2)
  - CARDIAC ARREST [None]
  - HYPOTENSION [None]
